FAERS Safety Report 9386171 (Version 3)
Quarter: 2014Q1

REPORT INFORMATION
  Report Type: Spontaneous
  Country: US (occurrence: US)
  Receive Date: 20130707
  Receipt Date: 20140325
  Transmission Date: 20141002
  Serious: Yes (Hospitalization, Other)
  Sender: FDA-Public Use
  Company Number: US-UCBSA-087189

PATIENT
  Age: 52 Year
  Sex: Male
  Weight: 86 kg

DRUGS (8)
  1. KEPPRA [Suspect]
     Indication: CONVULSION
     Dosage: DOSE STRENGTH: 500 MG
     Dates: start: 2013
  2. KEPPRA [Suspect]
     Indication: CONVULSION
     Dates: start: 201209, end: 2013
  3. EPITOL [Concomitant]
     Dosage: 200 MG
     Dates: start: 201209
  4. ADVIL PM [Concomitant]
     Indication: POOR QUALITY SLEEP
     Dosage: UNKNOWN DOSE
  5. MELATONIN [Concomitant]
     Dosage: PM SLEEP
  6. VIT E [Concomitant]
     Dosage: ONCE DAILY
  7. MILK THISTLE [Concomitant]
     Dosage: ONCE DAILY
  8. VIT C [Concomitant]
     Dosage: ONCE DAILY

REACTIONS (3)
  - Convulsion [Recovered/Resolved]
  - Road traffic accident [Recovered/Resolved]
  - Rib fracture [Recovered/Resolved]
